FAERS Safety Report 9581023 (Version 1)
Quarter: 2013Q4

REPORT INFORMATION
  Report Type: Report from Study
  Country: DE (occurrence: DE)
  Receive Date: 20131002
  Receipt Date: 20131002
  Transmission Date: 20140711
  Serious: Yes (Hospitalization)
  Sender: FDA-Public Use
  Company Number: DE-ROCHE-1279691

PATIENT
  Age: 69 Year
  Sex: Female
  Weight: 98.5 kg

DRUGS (4)
  1. MYCOPHENOLATE MOFETIL [Suspect]
     Indication: RENAL TRANSPLANT
     Dosage: LAST DOSE PRIOR TO SAE : 06 MAY 2012
     Route: 048
     Dates: start: 20120206
  2. BASILIXIMAB [Suspect]
     Indication: RENAL TRANSPLANT
     Dosage: LAST DOSE PRIOR TO SAE: 10/FEB/2012
     Route: 042
     Dates: start: 20120206
  3. TACROLIMUS [Suspect]
     Indication: RENAL TRANSPLANT
     Dosage: LAST DOSE PRIOR TO SAE : 06 MAY 2012
     Route: 048
     Dates: start: 20120206
  4. PREDNISOLONE [Suspect]
     Indication: RENAL TRANSPLANT
     Dosage: LAST DOSE PRIOR TO SAE : 06 MAY 2012
     Route: 048
     Dates: start: 20120206

REACTIONS (2)
  - Blood glucose abnormal [Recovered/Resolved]
  - Fatigue [Recovered/Resolved]
